FAERS Safety Report 7924687 (Version 6)
Quarter: 2019Q4

REPORT INFORMATION
  Report Type: Spontaneous
  Country: US (occurrence: US)
  Receive Date: 20110502
  Receipt Date: 20191226
  Transmission Date: 20200122
  Serious: No
  Sender: FDA-Public Use
  Company Number: US-PFIZER INC-2011093165

PATIENT
  Age: 44 Year
  Sex: Female
  Weight: 59 kg

DRUGS (9)
  1. NORVASC [Interacting]
     Active Substance: AMLODIPINE BESYLATE
     Dosage: 2.5 MG, 2X/DAY
     Route: 048
     Dates: start: 2009
  2. NORVASC [Interacting]
     Active Substance: AMLODIPINE BESYLATE
     Dosage: 2.5 MG, 3X/DAY
  3. NORVASC [Interacting]
     Active Substance: AMLODIPINE BESYLATE
     Dosage: 2.5 MG, 3X/DAY
     Dates: start: 2018
  4. NORVASC [Interacting]
     Active Substance: AMLODIPINE BESYLATE
     Dosage: 2.5 MG, 2X/DAY
     Dates: start: 201902
  5. NORVASC [Suspect]
     Active Substance: AMLODIPINE BESYLATE
     Indication: HYPERTENSION
     Dosage: 2.5 MG, 2X/DAY
     Route: 048
     Dates: start: 2008
  6. NORVASC [Interacting]
     Active Substance: AMLODIPINE BESYLATE
     Dosage: 2.5 MG, 2X/DAY
     Dates: start: 2018
  7. NORVASC [Interacting]
     Active Substance: AMLODIPINE BESYLATE
     Dosage: 2.5 MG, UNK ((2X OR 3X DAY(2.5MG) DEPENDING ON ACTIVITY)
     Dates: start: 20190913
  8. NORVASC [Interacting]
     Active Substance: AMLODIPINE BESYLATE
     Dosage: 2.5 MG, 3X/DAY
     Dates: start: 2018
  9. NORVASC [Interacting]
     Active Substance: AMLODIPINE BESYLATE
     Dosage: 2.5 MG, 2X/DAY
     Dates: start: 2019

REACTIONS (7)
  - Joint swelling [Recovered/Resolved]
  - Off label use [Unknown]
  - Dizziness [Recovered/Resolved]
  - Blood pressure inadequately controlled [Recovered/Resolved]
  - Intentional product use issue [Unknown]
  - Food interaction [Recovered/Resolved]
  - Peripheral swelling [Recovered/Resolved]

NARRATIVE: CASE EVENT DATE: 2008
